FAERS Safety Report 9459561 (Version 1)
Quarter: 2013Q3

REPORT INFORMATION
  Report Type: Spontaneous
  Country: US (occurrence: US)
  Receive Date: 20130815
  Receipt Date: 20130815
  Transmission Date: 20140515
  Serious: No
  Sender: FDA-Public Use
  Company Number: US-PFIZER INC-2013236158

PATIENT
  Age: 39 Year
  Sex: 0

DRUGS (3)
  1. NEURONTIN [Suspect]
     Dosage: UNK
  2. LOTREL [Suspect]
     Dosage: UNK
  3. LORTAB [Suspect]
     Dosage: UNK

REACTIONS (1)
  - Drug hypersensitivity [Unknown]
